FAERS Safety Report 23667258 (Version 1)
Quarter: 2024Q1

REPORT INFORMATION
  Report Type: Report from Study
  Country: US (occurrence: US)
  Receive Date: 20240325
  Receipt Date: 20240325
  Transmission Date: 20240409
  Serious: Yes (Hospitalization, Other)
  Sender: FDA-Public Use
  Company Number: US-UCBSA-2023060436

PATIENT
  Age: 5 Year
  Sex: Female

DRUGS (2)
  1. FINTEPLA [Suspect]
     Active Substance: FENFLURAMINE
     Indication: Epilepsy
     Dosage: 4.5 MILLILITER, 2X/DAY (BID)
     Route: 048
     Dates: start: 202312
  2. FINTEPLA [Suspect]
     Active Substance: FENFLURAMINE
     Indication: Off label use
     Dosage: 4.5 MILLILITER, 2X/DAY (BID)
     Route: 048

REACTIONS (2)
  - Seizure [Recovered/Resolved]
  - Off label use [Unknown]

NARRATIVE: CASE EVENT DATE: 20231201
